FAERS Safety Report 17534295 (Version 1)
Quarter: 2020Q1

REPORT INFORMATION
  Report Type: Spontaneous
  Country: US (occurrence: US)
  Receive Date: 20200312
  Receipt Date: 20200312
  Transmission Date: 20200409
  Serious: Yes (Other)
  Sender: FDA-Public Use
  Company Number: US-PFIZER INC-2020105437

PATIENT
  Sex: Female
  Weight: 164.5 kg

DRUGS (22)
  1. SEPTRA DS [Concomitant]
     Active Substance: SULFAMETHOXAZOLE\TRIMETHOPRIM
     Dosage: 1 DF, DAILY(800-160 MG PER TABLET)
     Route: 048
  2. LIPITOR [Concomitant]
     Active Substance: ATORVASTATIN CALCIUM
     Dosage: 80 MG, 1X/DAY(NIGHTLY)
     Route: 048
  3. NORCO [Concomitant]
     Active Substance: ACETAMINOPHEN\HYDROCODONE BITARTRATE
     Indication: PAIN
     Dosage: 1 DF, AS NEEDED (EVERY 6 HOURS AS NEEDED) (5-325 MG PER TABLET)
     Route: 048
  4. TYLENOL [Concomitant]
     Active Substance: ACETAMINOPHEN
     Indication: PAIN
     Dosage: 1000 MG, AS NEEDED (TAKE 1,000 MG BY MOUTH EVERY 6 HOURS AS NEEDED)
     Route: 048
  5. MOTRIN [Concomitant]
     Active Substance: IBUPROFEN
     Indication: PAIN
     Dosage: 200 MG, AS NEEDED (TAKING 3-4 200 MG TABLETS AS NEEDED)
  6. LORAZEPAM. [Suspect]
     Active Substance: LORAZEPAM
     Dosage: UNK
  7. LANTUS [Concomitant]
     Active Substance: INSULIN GLARGINE
     Dosage: 14 IU, 1X/DAY (INJECT 14 UNITS INTO THE SKIN NIGHTLY. PRIME 2 UNITS BEFORE EACH DOSE)
     Route: 058
  8. LUVOX [Concomitant]
     Active Substance: FLUVOXAMINE MALEATE
     Dosage: 100 MG, 2X/DAY (TAKE 1 TABLET BY MOUTH 2 TIMES DAILY)
     Route: 048
  9. DELTASONE [Concomitant]
     Active Substance: PREDNISONE
     Dosage: 80 MG, DAILY (TAKE 4 TABLETS BY MOUTH DAILY (WITH BREAKFAST))
     Route: 048
  10. XANAX [Suspect]
     Active Substance: ALPRAZOLAM
     Dosage: UNK
  11. PLAQUENIL [Concomitant]
     Active Substance: HYDROXYCHLOROQUINE SULFATE
     Dosage: 200 MG, 2X/DAY (TAKE 1 TABLET BY MOUTH 2 TIMES DAILY (WITH MEALS))
     Route: 048
  12. ZOFRAN [Concomitant]
     Active Substance: ONDANSETRON HYDROCHLORIDE
     Indication: NAUSEA
     Dosage: 2 ML, AS NEEDED (4 MG/2 ML INJECTABLE SOLUTION)
     Route: 042
  13. PROTONIX [Concomitant]
     Active Substance: PANTOPRAZOLE SODIUM
     Dosage: 40 MG, DAILY (TAKE 1 TABLET BY MOUTH DAILY (BEFORE BREAKFAST))
     Route: 048
  14. TOPAMAX [Concomitant]
     Active Substance: TOPIRAMATE
     Dosage: 75 MG, 2X/DAY (TAKE 3 TABLETS BY MOUTH 2 TIMES DAILY)
     Route: 048
  15. ELIQUIS [Concomitant]
     Active Substance: APIXABAN
     Dosage: 5 MG, 2X/DAY (TAKE 1 TABLET BY MOUTH EVERY 12 HOURS)
     Route: 048
  16. MELATONIN [Concomitant]
     Active Substance: MELATONIN
     Indication: INSOMNIA
     Dosage: 3 MG, AS NEEDED (TAKE 2 TABLETS BY MOUTH NIGHTLY AS NEEDED)
     Route: 048
  17. VITAMIN C [Concomitant]
     Active Substance: ASCORBIC ACID
     Dosage: 1000 MG, DAILY
     Route: 048
  18. BACTRIM DS [Concomitant]
     Active Substance: SULFAMETHOXAZOLE\TRIMETHOPRIM
     Indication: PAIN
     Dosage: 1 DF, 2X/DAY (800-160 MG PER TABLET) (TAKE 1 TABLET BY MOUTH 2 TIMES DAILY)
     Route: 048
  19. KLOR-CON M20 [Concomitant]
     Active Substance: POTASSIUM CHLORIDE
     Dosage: 20 MEQ, 2X/DAY
     Route: 048
  20. VITAMIN D3 [Concomitant]
     Active Substance: CHOLECALCIFEROL
     Dosage: 5000 IU, DAILY
     Route: 048
  21. ZOFRAN [Concomitant]
     Active Substance: ONDANSETRON HYDROCHLORIDE
     Dosage: UNK, AS NEEDED
     Route: 048
  22. HUMALOG [Concomitant]
     Active Substance: INSULIN LISPRO
     Dosage: 2 IU, 3X/DAY (INJECT 2 UNITS INTO THE SKIN 3 TIMES DAILY (WITH MEALS))
     Route: 058

REACTIONS (3)
  - Loss of consciousness [Unknown]
  - Crying [Unknown]
  - Depression [Unknown]
